FAERS Safety Report 4780043-9 (Version None)
Quarter: 2005Q3

REPORT INFORMATION
  Report Type: 
  Country: None (occurrence: None)
  Receive Date: 20050914
  Receipt Date: 20050430
  Transmission Date: 20060218
  Serious: Yes (Death, Hospitalization)
  Sender: FDA-Public Use
  Company Number: 163-20785-04070307

PATIENT
  Age: 47 Year
  Sex: Female
  Weight: 87.7 kg

DRUGS (20)
  1. THALOMID [Suspect]
     Indication: MULTIPLE MYELOMA
     Dosage: 200 MG, DAILY, ORAL
     Route: 048
     Dates: start: 20040703, end: 20040703
  2. THALOMID [Suspect]
     Indication: MULTIPLE MYELOMA
     Dosage: 200 MG, DAILY, ORAL
     Route: 048
     Dates: start: 20040715, end: 20040718
  3. THALOMID [Suspect]
     Indication: MULTIPLE MYELOMA
     Dosage: 200 MG, DAILY, ORAL
     Route: 048
     Dates: start: 20040720, end: 20040721
  4. BORTEZOMIB (BORTEZOMIB) [Suspect]
     Indication: MULTIPLE MYELOMA
     Dosage: 2 MG, INTRAVENOUS
     Route: 042
     Dates: start: 20040630, end: 20040630
  5. BORTEZOMIB (BORTEZOMIB) [Suspect]
     Indication: MULTIPLE MYELOMA
     Dosage: 2 MG, INTRAVENOUS
     Route: 042
     Dates: start: 20040703, end: 20040703
  6. ADRIAMYCIN PFS [Suspect]
     Indication: MULTIPLE MYELOMA
     Dosage: 18 MG, DAILY, INTRAVENOUS
     Route: 042
     Dates: start: 20040703, end: 20040703
  7. CYCLOPHOSPHAMIDE [Suspect]
     Indication: MULTIPLE MYELOMA
     Dosage: 724 MG, DAILY, INTRAVENOUS
     Route: 042
     Dates: start: 20040703, end: 20040703
  8. CYCLOPHOSPHAMIDE [Suspect]
     Indication: MULTIPLE MYELOMA
     Dosage: 724 MG, DAILY, INTRAVENOUS
     Route: 042
     Dates: start: 20040715, end: 20040718
  9. DEXAMETHASONE [Suspect]
     Indication: MULTIPLE MYELOMA
     Dosage: 40 MG, DAILY, ORAL;  40 MG, DAILY
     Route: 048
     Dates: start: 20040702, end: 20040704
  10. DEXAMETHASONE [Suspect]
     Indication: MULTIPLE MYELOMA
     Dosage: 40 MG, DAILY, ORAL;  40 MG, DAILY
     Route: 048
     Dates: start: 20040715, end: 20040717
  11. ETOPOSIDE [Suspect]
     Indication: MULTIPLE MYELOMA
     Dosage: 72 MG, DAILY, INTRAVENOUS;  72 MG, DAILY
     Route: 042
     Dates: start: 20040703, end: 20040703
  12. ETOPOSIDE [Suspect]
     Indication: MULTIPLE MYELOMA
     Dosage: 72 MG, DAILY, INTRAVENOUS;  72 MG, DAILY
     Route: 042
     Dates: start: 20040715, end: 20040718
  13. PEPCID [Concomitant]
  14. FLEXERIL [Concomitant]
  15. LEVOXYL [Concomitant]
  16. STOOL SOFTENER (DOCUSATE SODIUM) [Concomitant]
  17. TYLENOL [Concomitant]
  18. NEUTRA-PHOS (NEUTRA-PHOS) [Concomitant]
  19. LOVENOX [Concomitant]
  20. MELPHALAN (MELPHALAN) [Concomitant]

REACTIONS (14)
  - BACTERAEMIA [None]
  - BLOOD CREATINE PHOSPHOKINASE MB INCREASED [None]
  - BLOOD CREATININE INCREASED [None]
  - COMA [None]
  - DEATH [None]
  - HYPERCALCAEMIA [None]
  - HYPERCAPNIA [None]
  - HYPERURICAEMIA [None]
  - HYPOKALAEMIA [None]
  - INTUBATION [None]
  - MYOCARDIAL INFARCTION [None]
  - RENAL FAILURE [None]
  - STAPHYLOCOCCAL INFECTION [None]
  - TROPONIN INCREASED [None]
